FAERS Safety Report 9515252 (Version 3)
Quarter: 2013Q4

REPORT INFORMATION
  Report Type: Report from Study
  Country: US (occurrence: US)
  Receive Date: 20130911
  Receipt Date: 20131030
  Transmission Date: 20140711
  Serious: Yes (Other)
  Sender: FDA-Public Use
  Company Number: US-US-EMD SERONO, INC.-7232575

PATIENT
  Age: 66 Year
  Sex: Female

DRUGS (2)
  1. REBIF [Suspect]
     Indication: MULTIPLE SCLEROSIS
     Route: 058
     Dates: start: 20130328
  2. ADVIL                              /00109201/ [Concomitant]
     Indication: PREMEDICATION

REACTIONS (7)
  - Blood pressure increased [Recovering/Resolving]
  - Blood glucose increased [Not Recovered/Not Resolved]
  - Streptococcal urinary tract infection [Unknown]
  - Chest discomfort [Recovering/Resolving]
  - Headache [Recovering/Resolving]
  - Cystitis [Not Recovered/Not Resolved]
  - Chest pain [Recovering/Resolving]
